FAERS Safety Report 17371177 (Version 1)
Quarter: 2020Q1

REPORT INFORMATION
  Report Type: Spontaneous
  Country: US (occurrence: US)
  Receive Date: 20200121
  Receipt Date: 20200121
  Transmission Date: 20200409
  Serious: No
  Sender: FDA-Public Use
  Company Number: None

PATIENT

DRUGS (3)
  1. ASPIRIN. [Suspect]
     Active Substance: ASPIRIN
  2. BISACODYL. [Suspect]
     Active Substance: BISACODYL
  3. HYDROCORTISONE. [Suspect]
     Active Substance: HYDROCORTISONE

REACTIONS (2)
  - Product packaging confusion [None]
  - Wrong product stored [None]
